FAERS Safety Report 24532737 (Version 1)
Quarter: 2024Q4

REPORT INFORMATION
  Report Type: Spontaneous
  Country: SN (occurrence: SN)
  Receive Date: 20241022
  Receipt Date: 20241022
  Transmission Date: 20250114
  Serious: Yes (Death, Other)
  Sender: RANBAXY
  Company Number: SN-SUN PHARMACEUTICAL INDUSTRIES LTD-2024R1-474304

PATIENT
  Age: 56 Year
  Sex: Male

DRUGS (2)
  1. CARBOPLATIN [Suspect]
     Active Substance: CARBOPLATIN
     Indication: Myxoid liposarcoma
     Dosage: UNK (400 MG/M2)
     Route: 042
  2. ADRIAMYCIN [Suspect]
     Active Substance: DOXORUBICIN HYDROCHLORIDE
     Indication: Myxoid liposarcoma
     Dosage: UNK (60 MG/M2)
     Route: 065

REACTIONS (1)
  - Death [Fatal]
